FAERS Safety Report 25466876 (Version 2)
Quarter: 2025Q4

REPORT INFORMATION
  Report Type: Spontaneous
  Country: GB (occurrence: GB)
  Receive Date: 20250623
  Receipt Date: 20251204
  Transmission Date: 20260117
  Serious: Yes (Hospitalization, Disabling, Other)
  Sender: JUBILANT
  Company Number: None

PATIENT
  Age: 36 Year
  Sex: Male
  Weight: 93 kg

DRUGS (15)
  1. PREGABALIN [Suspect]
     Active Substance: PREGABALIN
     Indication: Neuralgia
     Dosage: UNK,UNK
  2. PREGABALIN [Suspect]
     Active Substance: PREGABALIN
     Dosage: DOSE INCREASE
  3. PREGABALIN [Suspect]
     Active Substance: PREGABALIN
     Dosage: 75 MG, 2 TIMES PER DAY
     Dates: start: 202505
  4. ZUCLOPENTHIXOL [Suspect]
     Active Substance: ZUCLOPENTHIXOL
     Indication: Psychotic disorder
     Dosage: UNK,UNK
  5. ZUCLOPENTHIXOL [Suspect]
     Active Substance: ZUCLOPENTHIXOL
     Dosage: 500 MG, PER WEEK
  6. CLONAZEPAM [Concomitant]
     Active Substance: CLONAZEPAM
     Indication: Product used for unknown indication
     Dosage: 1 MG, 3 TIMES PER DAY
  7. CHOLECALCIFEROL [Concomitant]
     Active Substance: CHOLECALCIFEROL
     Indication: Product used for unknown indication
     Dosage: UNK ,ONCE PER DAY  (800 UNITS)
  8. CYANOCOBALAMIN [Concomitant]
     Active Substance: CYANOCOBALAMIN
     Indication: Product used for unknown indication
     Dosage: 1 MG, ONCE PER DAY
  9. LORATADINE [Concomitant]
     Active Substance: LORATADINE
     Indication: Product used for unknown indication
     Dosage: 10 MG, ONCE PER DAY
  10. BISOPROLOL FUMARATE [Concomitant]
     Active Substance: BISOPROLOL FUMARATE
     Indication: Product used for unknown indication
     Dosage: 1.25 MG, ONCE PER DAY
  11. ACETAMINOPHEN [Concomitant]
     Active Substance: ACETAMINOPHEN
     Indication: Product used for unknown indication
     Dosage: 1 G, UNK (UP TO FOUR TIMES DAILY WHEN REQUIRED)
  12. IBUPROFEN [Concomitant]
     Active Substance: IBUPROFEN
     Indication: Product used for unknown indication
     Dosage: 400 MG, UNK (UP TO THREE TIMES DAILY WHEN REQUIRED)
  13. CODEINE PHOSPHATE [Concomitant]
     Active Substance: CODEINE PHOSPHATE
     Indication: Product used for unknown indication
     Dosage: 30 MG, UNK (UPTO 4 TIMES DAILY WHEN REQUIRED)
  14. NICOTINE [Concomitant]
     Active Substance: NICOTINE
     Indication: Product used for unknown indication
     Dosage: UNK,  UNK
  15. LORAZEPAM [Concomitant]
     Active Substance: LORAZEPAM
     Indication: Product used for unknown indication
     Dosage: 1 MG, UNK

REACTIONS (3)
  - Priapism [Recovered/Resolved]
  - Groin pain [Recovered/Resolved]
  - Drug interaction [Recovered/Resolved]

NARRATIVE: CASE EVENT DATE: 20250601
